FAERS Safety Report 14773333 (Version 1)
Quarter: 2018Q2

REPORT INFORMATION
  Report Type: Spontaneous
  Country: US (occurrence: US)
  Receive Date: 20180418
  Receipt Date: 20180418
  Transmission Date: 20180711
  Serious: No
  Sender: FDA-Public Use
  Company Number: US-ELI_LILLY_AND_COMPANY-US201803009053

PATIENT
  Sex: Female

DRUGS (1)
  1. HUMULIN N [Suspect]
     Active Substance: INSULIN HUMAN
     Indication: GESTATIONAL DIABETES
     Dosage: UNK UNK, UNKNOWN
     Route: 065
     Dates: start: 20180317

REACTIONS (3)
  - Insomnia [Recovering/Resolving]
  - Exposure during pregnancy [Recovering/Resolving]
  - Poor quality sleep [Recovering/Resolving]
